FAERS Safety Report 13561248 (Version 1)
Quarter: 2017Q2

REPORT INFORMATION
  Report Type: Report from Study
  Country: US (occurrence: BR)
  Receive Date: 20170518
  Receipt Date: 20170518
  Transmission Date: 20170830
  Serious: Yes (Life-Threatening, Other)
  Sender: FDA-Public Use
  Company Number: US-SUNOVION-2017SUN002033

PATIENT
  Sex: Male
  Weight: 77 kg

DRUGS (1)
  1. INDACATEROL AND GLYCOPYRROLATE [Suspect]
     Active Substance: GLYCOPYRROLATE\INDACATEROL MALEATE
     Indication: EMPHYSEMA
     Dosage: 1 CAPSULE (100MCG+50MCG), QD
     Route: 055
     Dates: start: 20170131

REACTIONS (10)
  - Poisoning [Unknown]
  - Influenza [Unknown]
  - Tuberculosis [Unknown]
  - Lung disorder [Unknown]
  - Weight decreased [Unknown]
  - General physical health deterioration [Unknown]
  - Pneumonia [Unknown]
  - Apparent death [Unknown]
  - Pyrexia [Unknown]
  - Hypotension [Unknown]
